FAERS Safety Report 8246228-4 (Version None)
Quarter: 2012Q1

REPORT INFORMATION
  Report Type: 
  Country: None (occurrence: None)
  Receive Date: 20120330
  Receipt Date: 20100602
  Transmission Date: 20120608
  Serious: No
  Sender: FDA-Public Use
  Company Number: US-MYLANLABS-2010S1009880

PATIENT
  Age: 9 Year
  Sex: Female

DRUGS (1)
  1. ALBUTEROL SULFATE [Suspect]
     Indication: ASTHMA
     Route: 048
     Dates: start: 20100602, end: 20100602

REACTIONS (2)
  - INCORRECT ROUTE OF DRUG ADMINISTRATION [None]
  - NO ADVERSE EVENT [None]
